FAERS Safety Report 9838512 (Version 4)
Quarter: 2014Q1

REPORT INFORMATION
  Report Type: Report from Study
  Country: US (occurrence: US)
  Receive Date: 20140123
  Receipt Date: 20140318
  Transmission Date: 20141002
  Serious: Yes (Hospitalization, Other)
  Sender: FDA-Public Use
  Company Number: US-ABBVIE-14P-163-1190433-00

PATIENT
  Age: 64 Year
  Sex: Male
  Weight: 96.7 kg

DRUGS (10)
  1. HUMIRA [Suspect]
     Indication: CROHN^S DISEASE
     Dates: start: 20130906, end: 20131227
  2. NEXIUM [Concomitant]
     Indication: GASTROOESOPHAGEAL REFLUX DISEASE
  3. GABAPENTIN [Concomitant]
     Indication: NEUROPATHY PERIPHERAL
  4. MULTIVITAMIN [Concomitant]
     Indication: PRODUCT USED FOR UNKNOWN INDICATION
  5. OXYCODONE [Concomitant]
     Indication: PAIN
     Dates: end: 201401
  6. UNKNOWN STOOD SOFTENER [Concomitant]
     Indication: PRODUCT USED FOR UNKNOWN INDICATION
     Dosage: OVER THE COUNTER
  7. PENTASA [Concomitant]
     Indication: PRODUCT USED FOR UNKNOWN INDICATION
     Dates: end: 201310
  8. PENTASA [Concomitant]
  9. ENTOCORT [Concomitant]
     Indication: PRODUCT USED FOR UNKNOWN INDICATION
     Dates: end: 201310
  10. ENTOCORT [Concomitant]

REACTIONS (19)
  - Gastrointestinal disorder [Not Recovered/Not Resolved]
  - Abdominal pain [Not Recovered/Not Resolved]
  - Diarrhoea [Not Recovered/Not Resolved]
  - Gastrointestinal oedema [Unknown]
  - Colitis ulcerative [Unknown]
  - Post procedural infection [Recovered/Resolved]
  - Staphylococcal infection [Unknown]
  - Incisional drainage [Recovered/Resolved]
  - Incision site inflammation [Recovered/Resolved]
  - Pyrexia [Recovered/Resolved]
  - Pallor [Recovered/Resolved]
  - Asthenia [Recovered/Resolved]
  - Haematochezia [Unknown]
  - Haematemesis [Unknown]
  - Intestinal fibrosis [Unknown]
  - Intestinal mucosal hypertrophy [Unknown]
  - Crohn^s disease [Unknown]
  - Impaired healing [Unknown]
  - Small intestinal stenosis [Unknown]
